FAERS Safety Report 25024267 (Version 3)
Quarter: 2025Q3

REPORT INFORMATION
  Report Type: Report from Study
  Country: US (occurrence: US)
  Receive Date: 20250228
  Receipt Date: 20250926
  Transmission Date: 20251020
  Serious: Yes (Death, Hospitalization, Other)
  Sender: JAZZ
  Company Number: US-JAZZ PHARMACEUTICALS-2025-US-005235

PATIENT
  Age: 4 Year
  Sex: Female

DRUGS (2)
  1. EPIDIOLEX [Suspect]
     Active Substance: CANNABIDIOL
     Indication: Epilepsy
  2. PULMOZYME [Suspect]
     Active Substance: DORNASE ALFA
     Indication: Product used for unknown indication

REACTIONS (8)
  - Hypokalaemia [Fatal]
  - Norovirus infection [Fatal]
  - Clostridium difficile infection [Fatal]
  - Coagulopathy [Fatal]
  - Thrombocytopenia [Fatal]
  - Diarrhoea [Fatal]
  - Gastrointestinal disorder [Fatal]
  - Acute respiratory failure [Unknown]

NARRATIVE: CASE EVENT DATE: 20250109
